FAERS Safety Report 18756490 (Version 1)
Quarter: 2021Q1

REPORT INFORMATION
  Report Type: Spontaneous
  Country: FR (occurrence: FR)
  Receive Date: 20210119
  Receipt Date: 20210119
  Transmission Date: 20210419
  Serious: Yes (Hospitalization, Other)
  Sender: FDA-Public Use
  Company Number: FR-PFIZER INC-2021025188

PATIENT
  Age: 54 Year
  Sex: Male

DRUGS (2)
  1. SUTENT [Suspect]
     Active Substance: SUNITINIB MALATE
     Dosage: 50 MG, DAILY 4 WEEKS OUT OFF 6
     Dates: start: 20091004
  2. SUTENT [Suspect]
     Active Substance: SUNITINIB MALATE
     Dosage: 37.5 MG, DAILY
     Dates: end: 201409

REACTIONS (55)
  - Behaviour disorder [Unknown]
  - Rectal haemorrhage [Unknown]
  - Major depression [Unknown]
  - Alcohol poisoning [Unknown]
  - Hyperthyroidism [Unknown]
  - Tachycardia [Unknown]
  - Anorectal discomfort [Unknown]
  - Tooth disorder [Unknown]
  - Gastrointestinal toxicity [Unknown]
  - Gout [Unknown]
  - Spider naevus [Unknown]
  - Suicidal ideation [Unknown]
  - General physical health deterioration [Unknown]
  - Hypertriglyceridaemia [Unknown]
  - Asthenia [Unknown]
  - Bradycardia [Unknown]
  - Palmar-plantar erythrodysaesthesia syndrome [Unknown]
  - Arthralgia [Unknown]
  - Osteoarthritis [Unknown]
  - Decreased appetite [Unknown]
  - Abdominal pain [Unknown]
  - Thrombocytopenia [Unknown]
  - Anal inflammation [Unknown]
  - Constipation [Unknown]
  - Gastrointestinal motility disorder [Unknown]
  - Hypothyroidism [Unknown]
  - Ageusia [Unknown]
  - Oropharyngeal pain [Unknown]
  - Thinking abnormal [Unknown]
  - Bone sequestrum [Unknown]
  - Dry skin [Unknown]
  - Haematospermia [Unknown]
  - Dry mouth [Unknown]
  - Weight decreased [Unknown]
  - Mucosal inflammation [Unknown]
  - Dyspepsia [Unknown]
  - Diarrhoea [Recovering/Resolving]
  - Chest pain [Unknown]
  - Vomiting [Unknown]
  - Discomfort [Unknown]
  - Dyspnoea [Unknown]
  - Gastrointestinal pain [Unknown]
  - Fatigue [Recovering/Resolving]
  - Gastroenteritis [Unknown]
  - Thyroid mass [Unknown]
  - Depression [Unknown]
  - Neutropenia [Unknown]
  - Dyspepsia [Unknown]
  - Mucosal inflammation [Unknown]
  - Hypertension [Unknown]
  - Streptococcal infection [Unknown]
  - Nausea [Unknown]
  - Cough [Unknown]
  - Tobacco poisoning [Unknown]
  - Liver function test abnormal [Unknown]

NARRATIVE: CASE EVENT DATE: 2009
